FAERS Safety Report 8362674-2 (Version None)
Quarter: 2012Q2

REPORT INFORMATION
  Report Type: 
  Country: None (occurrence: None)
  Receive Date: 20120514
  Receipt Date: 20120426
  Transmission Date: 20120825
  Serious: Yes (Other)
  Sender: FDA-Public Use
  Company Number: US-1192029

PATIENT
  Age: 75 Year
  Sex: Female

DRUGS (3)
  1. VIGAMOX [Suspect]
     Indication: ENDOPHTHALMITIS
     Dosage: SEE IMAGE: OPHTHALMIC
     Route: 047
  2. VIGAMOX [Suspect]
     Indication: ANTIBIOTIC PROPHYLAXIS
     Dosage: SEE IMAGE: OPHTHALMIC
     Route: 047
  3. PREDNISOLONE ACETATE [Concomitant]

REACTIONS (6)
  - COMPLICATIONS OF TRANSPLANT SURGERY [None]
  - VISUAL ACUITY REDUCED [None]
  - ENDOPHTHALMITIS [None]
  - CONJUNCTIVAL HYPERAEMIA [None]
  - VITRITIS [None]
  - ANTIBIOTIC RESISTANT STAPHYLOCOCCUS TEST POSITIVE [None]
